FAERS Safety Report 10027656 (Version 1)
Quarter: 2014Q1

REPORT INFORMATION
  Report Type: Spontaneous
  Country: US (occurrence: None)
  Receive Date: 20140318
  Receipt Date: 20140318
  Transmission Date: 20141002
  Serious: Yes (Hospitalization)
  Sender: FDA-Public Use
  Company Number: 152833

PATIENT
  Age: 33 Year
  Sex: Male

DRUGS (1)
  1. AZATHIOPRINE SODIUM [Suspect]
     Indication: UVEITIS

REACTIONS (7)
  - Asthenia [None]
  - Nausea [None]
  - Vomiting [None]
  - Jaundice [None]
  - Toxicity to various agents [None]
  - Aspartate aminotransferase increased [None]
  - Alanine aminotransferase increased [None]
